FAERS Safety Report 11896602 (Version 1)
Quarter: 2016Q1

REPORT INFORMATION
  Report Type: Spontaneous
  Country: US (occurrence: US)
  Receive Date: 20160107
  Receipt Date: 20160107
  Transmission Date: 20160526
  Serious: Yes (Other)
  Sender: FDA-Public Use
  Company Number: US-BAYER-2016-002158

PATIENT
  Age: 90 Year
  Sex: Female
  Weight: 47.62 kg

DRUGS (5)
  1. CITRACAL [Suspect]
     Active Substance: CALCIUM CITRATE
     Indication: VITAMIN SUPPLEMENTATION
     Dosage: SOMETIMES 3 DF, QD
     Route: 048
  2. BAYER LOW DOSE [Suspect]
     Active Substance: ASPIRIN
     Dosage: 1 DF, QD
  3. CITRACAL [Suspect]
     Active Substance: CALCIUM CITRATE
     Indication: VITAMIN SUPPLEMENTATION
     Dosage: SOMETIMES 2 DF, QD
     Route: 048
  4. CITRACAL PETITES [Suspect]
     Active Substance: CALCIUM CITRATE
     Indication: VITAMIN SUPPLEMENTATION
     Dosage: SOMETIMES 3 DF, QD
     Route: 048
  5. CITRACAL PETITES [Suspect]
     Active Substance: CALCIUM CITRATE
     Indication: VITAMIN SUPPLEMENTATION
     Dosage: SOMETIMES 2 DF, QD
     Route: 048

REACTIONS (4)
  - Choking [Recovered/Resolved]
  - Product use issue [Unknown]
  - Product difficult to swallow [None]
  - Therapeutic response unexpected [Unknown]
